FAERS Safety Report 5471933-2 (Version None)
Quarter: 2007Q3

REPORT INFORMATION
  Report Type: 
  Country: None (occurrence: None)
  Receive Date: 20070928
  Receipt Date: 20070918
  Transmission Date: 20080115
  Serious: Yes (Other)
  Sender: FDA-Public Use
  Company Number: US-PFIZER INC-2007070881

PATIENT
  Sex: Female
  Weight: 55.3 kg

DRUGS (3)
  1. CHANTIX [Suspect]
     Indication: SMOKING CESSATION THERAPY
     Route: 048
     Dates: start: 20070601, end: 20070101
  2. LEVOTHYROXINE SODIUM [Suspect]
     Indication: HYPOTHYROIDISM
  3. LEVOXYL [Suspect]
     Indication: HYPOTHYROIDISM

REACTIONS (6)
  - ASTHENIA [None]
  - BRADYPHRENIA [None]
  - CEREBROVASCULAR DISORDER [None]
  - DISORIENTATION [None]
  - EYE OEDEMA [None]
  - MEMORY IMPAIRMENT [None]
